FAERS Safety Report 5414775-6 (Version None)
Quarter: 2007Q3

REPORT INFORMATION
  Report Type: 
  Country: None (occurrence: None)
  Receive Date: 20070713
  Receipt Date: 20070202
  Transmission Date: 20080115
  Serious: Yes (Hospitalization, Other)
  Sender: FDA-Public Use
  Company Number: US-JNJFOC-20070201030

PATIENT
  Age: 33 Year
  Sex: Female
  Weight: 110.2241 kg

DRUGS (2)
  1. ORTHO EVRA [Suspect]
     Indication: DRUG USE FOR UNKNOWN INDICATION
     Dosage: TRANSDERMAL
     Route: 062
     Dates: end: 20060601
  2. ALLEGRA [Concomitant]

REACTIONS (1)
  - PULMONARY EMBOLISM [None]
